FAERS Safety Report 21159403 (Version 1)
Quarter: 2022Q3

REPORT INFORMATION
  Report Type: Spontaneous
  Country: JP (occurrence: JP)
  Receive Date: 20220802
  Receipt Date: 20220802
  Transmission Date: 20221026
  Serious: Yes (Hospitalization, Other)
  Sender: FDA-Public Use
  Company Number: JP-SUN PHARMACEUTICAL INDUSTRIES LTD-2022R1-346882

PATIENT
  Age: 55 Year
  Sex: Female

DRUGS (2)
  1. PREDNISOLONE [Suspect]
     Active Substance: PREDNISOLONE
     Indication: SAPHO syndrome
     Dosage: 10 MILLIGRAM
     Route: 065
  2. METHOTREXATE [Suspect]
     Active Substance: METHOTREXATE
     Indication: SAPHO syndrome
     Dosage: UNK
     Route: 065

REACTIONS (3)
  - Arthralgia [Recovering/Resolving]
  - Condition aggravated [Unknown]
  - Drug ineffective [Unknown]
